FAERS Safety Report 5563698-0 (Version None)
Quarter: 2007Q4

REPORT INFORMATION
  Report Type: 
  Country: None (occurrence: None)
  Receive Date: 20071217
  Receipt Date: 20070720
  Transmission Date: 20080405
  Serious: No
  Sender: FDA-Public Use
  Company Number: US-ASTRAZENECA-2007UW17611

PATIENT
  Age: 74 Year
  Sex: Female
  Weight: 999.9 kg

DRUGS (5)
  1. CRESTOR [Suspect]
     Indication: BLOOD CHOLESTEROL INCREASED
     Dosage: 1/2 OF A 5MG TABLET EVERY OTHER DAY
     Route: 048
     Dates: start: 20070701
  2. NEXIUM [Concomitant]
  3. ZYRTEC [Concomitant]
  4. PREMARIN [Concomitant]
  5. ATENOLOL [Concomitant]

REACTIONS (6)
  - AMNESIA [None]
  - ANXIETY [None]
  - HEADACHE [None]
  - MOOD SWINGS [None]
  - MYALGIA [None]
  - SOMNOLENCE [None]
